FAERS Safety Report 7598586-1 (Version None)
Quarter: 2011Q3

REPORT INFORMATION
  Report Type: 
  Country: None (occurrence: None)
  Receive Date: 20110709
  Receipt Date: 20110628
  Transmission Date: 20111222
  Serious: Yes (Other)
  Sender: FDA-Public Use
  Company Number: PHHY2011US32489

PATIENT
  Sex: Female

DRUGS (2)
  1. FEMARA [Suspect]
     Dates: start: 20100701
  2. FEMARA [Suspect]
     Dosage: 2.5 MG, DAILY
     Route: 048
     Dates: start: 20100701

REACTIONS (5)
  - MENTAL DISORDER [None]
  - VOMITING [None]
  - DYSPEPSIA [None]
  - EMOTIONAL DISTRESS [None]
  - ULCER [None]
